FAERS Safety Report 6199608-5 (Version None)
Quarter: 2009Q2

REPORT INFORMATION
  Report Type: 
  Country: None (occurrence: None)
  Receive Date: 20090522
  Receipt Date: 20080812
  Transmission Date: 20091009
  Serious: No
  Sender: FDA-Public Use
  Company Number: A0742453A

PATIENT
  Sex: Male

DRUGS (1)
  1. BACTROBAN [Suspect]
     Route: 047
     Dates: start: 20080812, end: 20080812

REACTIONS (3)
  - BURNING SENSATION [None]
  - INCORRECT ROUTE OF DRUG ADMINISTRATION [None]
  - PAIN [None]
